FAERS Safety Report 10230796 (Version 1)
Quarter: 2014Q2

REPORT INFORMATION
  Report Type: Spontaneous
  Country: IT (occurrence: IT)
  Receive Date: 20140611
  Receipt Date: 20140611
  Transmission Date: 20141212
  Serious: Yes (Other)
  Sender: FDA-Public Use
  Company Number: IT-ACTAVIS-2014-12122

PATIENT
  Age: 79 Year
  Sex: Male
  Weight: 70 kg

DRUGS (11)
  1. IRINOTECAN (UNKNOWN) [Suspect]
     Indication: RECTOSIGMOID CANCER
     Dosage: 240 MG, CYCLICAL
     Route: 042
     Dates: start: 20140218, end: 20140503
  2. ERBITUX [Suspect]
     Indication: RECTOSIGMOID CANCER
     Dosage: 560 MG, CYCLICAL
     Route: 042
     Dates: start: 20140218, end: 20140503
  3. 5-FLUOROURACIL                     /00098801/ [Suspect]
     Indication: RECTOSIGMOID CANCER
     Dosage: 3240 MG, CYCLICAL
     Route: 042
     Dates: start: 20140218, end: 20140503
  4. PANTORC [Concomitant]
     Indication: PRODUCT USED FOR UNKNOWN INDICATION
     Dosage: UNK
     Route: 065
  5. CARDIOASPIRIN [Concomitant]
     Indication: PRODUCT USED FOR UNKNOWN INDICATION
     Dosage: UNK
     Route: 065
  6. CONGESCOR [Concomitant]
     Indication: PRODUCT USED FOR UNKNOWN INDICATION
     Dosage: UNK
     Route: 065
  7. MICARDIS [Concomitant]
     Indication: PRODUCT USED FOR UNKNOWN INDICATION
     Dosage: UNK
     Route: 065
  8. PLAVIX [Concomitant]
     Indication: PRODUCT USED FOR UNKNOWN INDICATION
     Dosage: UNK
     Route: 065
  9. DILATREND [Concomitant]
     Indication: PRODUCT USED FOR UNKNOWN INDICATION
     Dosage: UNK
     Route: 065
  10. LEVOFOLINIC ACID                   /06682102/ [Concomitant]
     Indication: PRODUCT USED FOR UNKNOWN INDICATION
     Dosage: 270 MG, UNK
     Route: 065
     Dates: start: 20140218, end: 20140503
  11. SIMVASTATIN [Concomitant]
     Indication: PRODUCT USED FOR UNKNOWN INDICATION
     Dosage: UNK
     Route: 065

REACTIONS (1)
  - Rash [Not Recovered/Not Resolved]
